FAERS Safety Report 25076480 (Version 3)
Quarter: 2025Q2

REPORT INFORMATION
  Report Type: Spontaneous
  Country: US (occurrence: US)
  Receive Date: 20250313
  Receipt Date: 20250410
  Transmission Date: 20250717
  Serious: Yes (Other)
  Sender: ABBVIE
  Company Number: US-ABBVIE-6175968

PATIENT
  Age: 18 Year
  Sex: Female
  Weight: 57.606 kg

DRUGS (3)
  1. LILETTA [Suspect]
     Active Substance: LEVONORGESTREL
     Indication: Contraception
     Route: 015
     Dates: start: 20250206, end: 20250306
  2. LILETTA [Suspect]
     Active Substance: LEVONORGESTREL
     Route: 015
     Dates: start: 20250306
  3. CYTOTEC [Concomitant]
     Active Substance: MISOPROSTOL
     Indication: Premedication
     Dates: start: 20250306, end: 20250306

REACTIONS (7)
  - Uterine perforation [Unknown]
  - Device dislocation [Recovered/Resolved]
  - Post procedural haemorrhage [Unknown]
  - Post procedural infection [Unknown]
  - Procedural pain [Unknown]
  - Bladder injury [Unknown]
  - Gastrointestinal injury [Unknown]

NARRATIVE: CASE EVENT DATE: 20250301
